FAERS Safety Report 20174917 (Version 1)
Quarter: 2021Q4

REPORT INFORMATION
  Report Type: Spontaneous
  Country: US (occurrence: None)
  Receive Date: 20211209
  Receipt Date: 20211209
  Transmission Date: 20220303
  Serious: Yes (Hospitalization)
  Sender: FDA-Public Use
  Company Number: None

PATIENT
  Age: 85 Year
  Sex: Male
  Weight: 50.13 kg

DRUGS (1)
  1. REGEN-COV [Suspect]
     Active Substance: CASIRIVIMAB\IMDEVIMAB
     Indication: SARS-CoV-2 test positive
     Dosage: OTHER FREQUENCY : 1 TIME DOSE;?
     Route: 042

REACTIONS (7)
  - Chills [None]
  - Body temperature increased [None]
  - Diarrhoea [None]
  - Vomiting projectile [None]
  - Aggression [None]
  - Confusional state [None]
  - Treatment noncompliance [None]

NARRATIVE: CASE EVENT DATE: 20211208
